FAERS Safety Report 9125124 (Version 2)
Quarter: 2013Q3

REPORT INFORMATION
  Report Type: Report from Study
  Country: DE (occurrence: DE)
  Receive Date: 20130227
  Receipt Date: 20130819
  Transmission Date: 20140515
  Serious: Yes (Death)
  Sender: FDA-Public Use
  Company Number: DE-ROCHE-1195360

PATIENT
  Sex: Female
  Weight: 58 kg

DRUGS (3)
  1. RANIBIZUMAB [Suspect]
     Indication: AGE-RELATED MACULAR DEGENERATION
     Route: 050
     Dates: start: 20120420
  2. LATANOPROST EYE DROPS [Concomitant]
     Route: 065
     Dates: start: 20120327
  3. ACETYLSALICYLIC ACID [Concomitant]
     Route: 065
     Dates: start: 2002

REACTIONS (1)
  - Death [Fatal]
